FAERS Safety Report 18451298 (Version 1)
Quarter: 2020Q4

REPORT INFORMATION
  Report Type: Spontaneous
  Country: GB (occurrence: GB)
  Receive Date: 20201102
  Receipt Date: 20201102
  Transmission Date: 20210114
  Serious: Yes (Hospitalization, Disabling, Other)
  Sender: FDA-Public Use
  Company Number: GB-MACLEODS PHARMACEUTICALS US LTD-MAC2020028855

PATIENT

DRUGS (2)
  1. QUETIAPINE TABLET [Suspect]
     Active Substance: QUETIAPINE
     Dosage: 30 DOSAGE FORM, SINGLE
     Route: 065
  2. QUETIAPINE TABLET [Suspect]
     Active Substance: QUETIAPINE
     Indication: SCHIZOPHRENIA
     Dosage: UNK UNK, BID, DOSAGE VARIED BETWEEN 300 AND 600 MG
     Route: 065

REACTIONS (10)
  - Suicide attempt [Unknown]
  - Compartment syndrome [Unknown]
  - Toxicity to various agents [Unknown]
  - Somnolence [Recovered/Resolved]
  - Intentional overdose [Unknown]
  - Coma [Recovered/Resolved]
  - Peroneal nerve palsy [Unknown]
  - Treatment noncompliance [Unknown]
  - Rhabdomyolysis [Recovered/Resolved]
  - Immobile [Recovered/Resolved]
